FAERS Safety Report 11661576 (Version 5)
Quarter: 2015Q4

REPORT INFORMATION
  Report Type: Spontaneous
  Country: BR (occurrence: BR)
  Receive Date: 20151026
  Receipt Date: 20151215
  Transmission Date: 20160304
  Serious: Yes (Other)
  Sender: FDA-Public Use
  Company Number: BR-PFIZER INC-2015357598

PATIENT
  Age: 76 Year
  Sex: Female
  Weight: 56 kg

DRUGS (1)
  1. FRONTAL [Suspect]
     Active Substance: ALPRAZOLAM
     Indication: SLEEP DISORDER
     Dosage: ONE TABLET (1 MG) AT NIGHT, AT BEDTIME
     Route: 048
     Dates: start: 2005

REACTIONS (6)
  - Glaucoma [Unknown]
  - Pain [Unknown]
  - Malaise [Unknown]
  - Fall [Unknown]
  - Conjunctivitis [Unknown]
  - Intentional product use issue [Not Recovered/Not Resolved]

NARRATIVE: CASE EVENT DATE: 2005
